FAERS Safety Report 17247516 (Version 3)
Quarter: 2020Q1

REPORT INFORMATION
  Report Type: Report from Study
  Country: None (occurrence: CO)
  Receive Date: 20200108
  Receipt Date: 20200309
  Transmission Date: 20200409
  Serious: Yes (Other)
  Sender: FDA-Public Use
  Company Number: CO-ABBVIE-20K-036-3223608-00

PATIENT
  Age: 32 Year
  Sex: Female
  Weight: 52 kg

DRUGS (6)
  1. METHOTREXATE. [Concomitant]
     Active Substance: METHOTREXATE
     Indication: RHEUMATOID ARTHRITIS
     Dosage: 8 WEEKLY TABLETS
     Route: 048
  2. FOLIC ACID. [Concomitant]
     Active Substance: FOLIC ACID
     Indication: RHEUMATOID ARTHRITIS
     Dosage: 1 TABLET DAILY
     Route: 048
  3. HUMIRA [Suspect]
     Active Substance: ADALIMUMAB
     Indication: RHEUMATOID ARTHRITIS
     Route: 058
     Dates: start: 20180118, end: 20191219
  4. CALCIUM [Concomitant]
     Active Substance: CALCIUM
     Indication: RHEUMATOID ARTHRITIS
     Route: 048
  5. CALENDULA [Suspect]
     Active Substance: CALENDULA OFFICINALIS FLOWERING TOP
     Indication: PRODUCT USED FOR UNKNOWN INDICATION
     Dosage: WATER DRINKS
     Route: 065
  6. PREDNISOLONE. [Concomitant]
     Active Substance: PREDNISOLONE
     Indication: RHEUMATOID ARTHRITIS
     Dosage: 1 TABLET DAILY
     Route: 048

REACTIONS (15)
  - Peripheral coldness [Unknown]
  - Arthritis [Not Recovered/Not Resolved]
  - Peripheral swelling [Unknown]
  - Grip strength decreased [Unknown]
  - Inflammation [Unknown]
  - Influenza [Unknown]
  - Mobility decreased [Not Recovered/Not Resolved]
  - Haematochezia [Not Recovered/Not Resolved]
  - Weight decreased [Unknown]
  - Nail discolouration [Unknown]
  - Insomnia [Not Recovered/Not Resolved]
  - Joint swelling [Not Recovered/Not Resolved]
  - Muscle rigidity [Not Recovered/Not Resolved]
  - Colitis [Not Recovered/Not Resolved]
  - Cough [Unknown]

NARRATIVE: CASE EVENT DATE: 2018
